FAERS Safety Report 8110569-1 (Version None)
Quarter: 2012Q1

REPORT INFORMATION
  Report Type: 
  Country: None (occurrence: None)
  Receive Date: 20120203
  Receipt Date: 20120127
  Transmission Date: 20120608
  Serious: No
  Sender: FDA-Public Use
  Company Number: US-PFIZER INC-2012023355

PATIENT
  Sex: Male
  Weight: 77.098 kg

DRUGS (2)
  1. ADVIL PM [Suspect]
     Indication: MYALGIA
  2. ADVIL PM [Suspect]
     Indication: MUSCLE DISORDER
     Dosage: TWO 200/38MG CAPLETS  ONCE A DAY
     Route: 048
     Dates: start: 20120113

REACTIONS (2)
  - PRURITUS [None]
  - ACCIDENTAL EXPOSURE [None]
